FAERS Safety Report 25876327 (Version 1)
Quarter: 2025Q4

REPORT INFORMATION
  Report Type: Spontaneous
  Country: US (occurrence: US)
  Receive Date: 20251003
  Receipt Date: 20251003
  Transmission Date: 20260118
  Serious: No
  Sender: SANOFI AVENTIS
  Company Number: US-SA-2025SA293134

PATIENT
  Sex: Male
  Weight: 164 kg

DRUGS (1)
  1. DUPIXENT [Suspect]
     Active Substance: DUPILUMAB
     Dosage: 300.000MG EVERY 2 WEEKS
     Route: 058

REACTIONS (1)
  - Nasopharyngitis [Unknown]
